FAERS Safety Report 10027227 (Version 2)
Quarter: 2014Q3

REPORT INFORMATION
  Report Type: Other
  Country: PL (occurrence: PL)
  Receive Date: 20140321
  Receipt Date: 20140922
  Transmission Date: 20150326
  Serious: Yes (Death, Hospitalization)
  Sender: FDA-Public Use
  Company Number: PL-BRISTOL-MYERS SQUIBB COMPANY-20515573

PATIENT
  Age: 34 Year
  Sex: Female

DRUGS (1)
  1. METFORMIN HCL [Suspect]
     Active Substance: METFORMIN HYDROCHLORIDE

REACTIONS (8)
  - Toxicity to various agents [Fatal]
  - Suicide attempt [Fatal]
  - Pancreatic disorder [Fatal]
  - Hypotension [Fatal]
  - Lactic acidosis [Fatal]
  - Convulsion [Fatal]
  - Respiratory failure [Fatal]
  - Hepatorenal syndrome [Fatal]
